FAERS Safety Report 20626327 (Version 1)
Quarter: 2022Q1

REPORT INFORMATION
  Report Type: Spontaneous
  Country: JP (occurrence: JP)
  Receive Date: 20220323
  Receipt Date: 20220323
  Transmission Date: 20220423
  Serious: Yes (Other)
  Sender: FDA-Public Use
  Company Number: JP-ORGANON-O2203JPN000513J

PATIENT
  Age: 52 Year
  Sex: Female

DRUGS (3)
  1. DESLORATADINE [Suspect]
     Active Substance: DESLORATADINE
     Indication: Seasonal allergy
     Dosage: 5 MILLIGRAM, QD
     Route: 048
     Dates: start: 20220215, end: 20220316
  2. FEXOFENADINE HYDROCHLORIDE [Suspect]
     Active Substance: FEXOFENADINE HYDROCHLORIDE
     Indication: Seasonal allergy
     Dosage: 60 MILLIGRAM, BID
     Route: 065
     Dates: start: 20220215, end: 20220316
  3. CEPHARANTHINE [Concomitant]
     Active Substance: CEPHARANTHINE
     Dosage: 150 MILLIGRAM, QD
     Route: 065

REACTIONS (1)
  - Autoimmune disorder [Not Recovered/Not Resolved]

NARRATIVE: CASE EVENT DATE: 20220301
